FAERS Safety Report 13536695 (Version 4)
Quarter: 2017Q2

REPORT INFORMATION
  Report Type: Report from Study
  Country: None (occurrence: CH)
  Receive Date: 20170511
  Receipt Date: 20170620
  Transmission Date: 20170830
  Serious: Yes (Other)
  Sender: FDA-Public Use
  Company Number: CH-ABBVIE-17K-151-1969503-00

PATIENT
  Age: 35 Year
  Sex: Female

DRUGS (2)
  1. HUMIRA [Suspect]
     Active Substance: ADALIMUMAB
     Indication: CROHN^S DISEASE
     Route: 058
     Dates: start: 201606
  2. HUMIRA [Suspect]
     Active Substance: ADALIMUMAB
     Route: 058
     Dates: start: 20170519

REACTIONS (12)
  - Chondropathy [Unknown]
  - Infection [Unknown]
  - Sinusitis [Recovered/Resolved]
  - Immunodeficiency [Unknown]
  - Infectious mononucleosis [Recovered/Resolved]
  - Bronchitis [Recovered/Resolved]
  - Joint surgery [Unknown]
  - Post procedural infection [Recovered/Resolved]
  - Tonsillitis [Recovered/Resolved]
  - Diarrhoea [Recovering/Resolving]
  - Mastitis [Recovered/Resolved]
  - Abdominal pain [Recovering/Resolving]

NARRATIVE: CASE EVENT DATE: 201606
